FAERS Safety Report 25796235 (Version 1)
Quarter: 2025Q3

REPORT INFORMATION
  Report Type: Spontaneous
  Country: US (occurrence: None)
  Receive Date: 20250912
  Receipt Date: 20250912
  Transmission Date: 20251020
  Serious: Yes (Hospitalization)
  Sender: FDA-CTU
  Company Number: None

PATIENT
  Sex: Female

DRUGS (4)
  1. TOLVAPTAN [Suspect]
     Active Substance: TOLVAPTAN
     Indication: Blood osmolarity decreased
     Route: 048
     Dates: start: 20250912
  2. ASPIRIN LOW TAB 81MG EC [Concomitant]
  3. FISH OIL CAP 1200MG [Concomitant]
  4. MULTIPLE VIT TAB [Concomitant]

REACTIONS (1)
  - Thirst [None]
